FAERS Safety Report 24045396 (Version 1)
Quarter: 2024Q3

REPORT INFORMATION
  Report Type: Spontaneous
  Country: CA (occurrence: CA)
  Receive Date: 20240703
  Receipt Date: 20240703
  Transmission Date: 20241017
  Serious: Yes (Death)
  Sender: REGENERON
  Company Number: CA-BAYER-2024A095822

PATIENT
  Sex: Male

DRUGS (1)
  1. EYLEA [Suspect]
     Active Substance: AFLIBERCEPT
     Indication: Neovascular age-related macular degeneration
     Dosage: SOLUTION FOR INJECTION IN PRE-FILLED SYRINGE, 40 MG/ML
     Dates: start: 20210201

REACTIONS (1)
  - Death [Fatal]

NARRATIVE: CASE EVENT DATE: 20240521
